FAERS Safety Report 8215771-6 (Version None)
Quarter: 2012Q1

REPORT INFORMATION
  Report Type: 
  Country: None (occurrence: None)
  Receive Date: 20120316
  Receipt Date: 20120306
  Transmission Date: 20120608
  Serious: Yes (Other)
  Sender: FDA-Public Use
  Company Number: US-ROCHE-760768

PATIENT
  Sex: Male
  Weight: 108.9 kg

DRUGS (13)
  1. ACCUTANE [Suspect]
     Route: 065
  2. MINOCYCLINE HCL [Concomitant]
  3. AMNESTEEM [Suspect]
     Indication: ACNE
     Route: 065
  4. SOTRET [Suspect]
     Indication: ACNE
     Route: 048
  5. TYLENOL [Concomitant]
     Indication: NASOPHARYNGITIS
  6. ACCUTANE [Suspect]
     Route: 065
     Dates: start: 19960913, end: 19961101
  7. ACCUTANE [Suspect]
     Indication: ACNE
     Route: 065
     Dates: start: 19930210, end: 19940101
  8. ACCUTANE [Suspect]
  9. SULFACET-R [Concomitant]
  10. ACCUTANE [Suspect]
     Route: 065
     Dates: start: 19980112, end: 19980301
  11. ASPIRIN [Concomitant]
     Indication: PAIN
  12. NYQUIL [Concomitant]
     Indication: NASOPHARYNGITIS
  13. CEPHALEXIN [Concomitant]
     Indication: ACNE

REACTIONS (6)
  - DEPRESSION [None]
  - INFLAMMATORY BOWEL DISEASE [None]
  - RECTAL ABSCESS [None]
  - BLOOD TRIGLYCERIDES INCREASED [None]
  - COLITIS ULCERATIVE [None]
  - BLOOD CHOLESTEROL INCREASED [None]
